FAERS Safety Report 11636709 (Version 2)
Quarter: 2016Q4

REPORT INFORMATION
  Report Type: Report from Study
  Country: GB (occurrence: GB)
  Receive Date: 20151016
  Receipt Date: 20161102
  Transmission Date: 20170206
  Serious: Yes (Other)
  Sender: FDA-Public Use
  Company Number: GB-AMGEN-GBRSL2015107628

PATIENT
  Sex: Female

DRUGS (2)
  1. METHOTREXATE. [Concomitant]
     Active Substance: METHOTREXATE
     Dosage: UNK
  2. PROLIA [Suspect]
     Active Substance: DENOSUMAB
     Indication: RHEUMATOID ARTHRITIS
     Dosage: UNK
     Route: 065
     Dates: start: 201205, end: 2015

REACTIONS (7)
  - Cataract [Unknown]
  - Glaucoma [Unknown]
  - Ear infection [Not Recovered/Not Resolved]
  - Deafness [Not Recovered/Not Resolved]
  - Arthritis [Unknown]
  - Osteoporosis [Unknown]
  - Off label use [Unknown]

NARRATIVE: CASE EVENT DATE: 2014
